FAERS Safety Report 5330951-5 (Version None)
Quarter: 2007Q2

REPORT INFORMATION
  Report Type: 
  Country: None (occurrence: None)
  Receive Date: 20070522
  Receipt Date: 20070507
  Transmission Date: 20071010
  Serious: Yes (Hospitalization, Other)
  Sender: FDA-Public Use
  Company Number: US-AMGEN-STX210870

PATIENT
  Sex: Female
  Weight: 22.5 kg

DRUGS (6)
  1. ENBREL [Suspect]
     Indication: JUVENILE ARTHRITIS
     Route: 058
     Dates: start: 20060524, end: 20060810
  2. ENBREL [Suspect]
     Route: 058
     Dates: start: 20070110, end: 20070201
  3. METHOTREXATE [Concomitant]
     Indication: JUVENILE ARTHRITIS
     Route: 048
     Dates: start: 20061201, end: 20070105
  4. ZANTAC [Concomitant]
     Dates: start: 20060420
  5. NAPROSYN [Concomitant]
     Dates: start: 20060420
  6. PREDNISONE TAB [Concomitant]
     Route: 042

REACTIONS (7)
  - ALOPECIA [None]
  - CELLULITIS [None]
  - COUGH [None]
  - HEPATIC ENZYME INCREASED [None]
  - JUVENILE ARTHRITIS [None]
  - PIGMENTATION DISORDER [None]
  - UPPER RESPIRATORY TRACT INFECTION [None]
